FAERS Safety Report 6057569-3 (Version None)
Quarter: 2009Q1

REPORT INFORMATION
  Report Type: 
  Country: None (occurrence: None)
  Receive Date: 20090129
  Receipt Date: 20090121
  Transmission Date: 20090719
  Serious: Yes (Hospitalization)
  Sender: FDA-Public Use
  Company Number: FR-WYE-H07886709

PATIENT
  Sex: Female
  Weight: 109 kg

DRUGS (15)
  1. CORDARONE [Suspect]
     Route: 048
     Dates: end: 20080806
  2. ROCEPHIN [Suspect]
     Route: 042
     Dates: start: 20080716, end: 20080805
  3. OFLOCET [Suspect]
     Route: 048
     Dates: start: 20080722, end: 20080805
  4. CELLCEPT [Suspect]
     Route: 048
     Dates: end: 20080808
  5. AMLOR [Suspect]
     Route: 048
     Dates: end: 20080806
  6. CALCIPARINE [Concomitant]
     Route: 058
     Dates: start: 20080716
  7. NEORAL [Concomitant]
     Route: 048
  8. LASILIX [Concomitant]
     Dosage: NOT PROVIDED
     Dates: end: 20080716
  9. LASILIX [Concomitant]
     Dosage: NOT PROVIDED
     Dates: start: 20080723, end: 20080808
  10. SPECIAFOLDINE [Concomitant]
     Route: 048
     Dates: end: 20080806
  11. PREVISCAN [Concomitant]
     Dosage: NOT PROVIDED
     Route: 048
     Dates: end: 20080716
  12. FLAGYL [Concomitant]
     Dosage: NOT PROVIDED
     Dates: start: 20080722, end: 20080805
  13. ARANESP [Concomitant]
     Dates: end: 20080806
  14. VASTEN [Suspect]
     Route: 048
     Dates: end: 20080806
  15. TENORMIN [Suspect]
     Dosage: NOT PROVIDED
     Route: 048
     Dates: end: 20080806

REACTIONS (5)
  - CONDITION AGGRAVATED [None]
  - MUSCULAR WEAKNESS [None]
  - QUADRIPARESIS [None]
  - RENAL FAILURE [None]
  - RHABDOMYOLYSIS [None]
